FAERS Safety Report 6794893-0 (Version None)
Quarter: 2010Q2

REPORT INFORMATION
  Report Type: 
  Country: None (occurrence: None)
  Receive Date: 20100625
  Receipt Date: 20100616
  Transmission Date: 20101027
  Serious: Yes (Other)
  Sender: FDA-Public Use
  Company Number: US-BAYER-201025695NA

PATIENT
  Age: 38 Year
  Sex: Female

DRUGS (5)
  1. AVELOX [Suspect]
     Indication: BRONCHITIS
     Route: 048
     Dates: start: 20100614, end: 20100615
  2. XOPENEX [Concomitant]
  3. QVAR 40 [Concomitant]
     Route: 055
  4. MEDROL [Concomitant]
  5. ZITHROMAX [Concomitant]
     Dates: start: 20100603

REACTIONS (3)
  - BURNING SENSATION [None]
  - HYPOAESTHESIA [None]
  - PARAESTHESIA [None]
